FAERS Safety Report 6428176-5 (Version None)
Quarter: 2009Q4

REPORT INFORMATION
  Report Type: 
  Country: None (occurrence: None)
  Receive Date: 20091105
  Receipt Date: 20091029
  Transmission Date: 20100525
  Serious: Yes (Hospitalization, Other)
  Sender: FDA-Public Use
  Company Number: US-BAYER-200915610BCC

PATIENT
  Age: 52 Year
  Sex: Male
  Weight: 181 kg

DRUGS (5)
  1. ALEVE [Suspect]
     Indication: BACK PAIN
     Dosage: TOTAL DAILY DOSE: 220 MG  UNIT DOSE: 220 MG
     Route: 048
     Dates: start: 20090408, end: 20090408
  2. ALEVE [Suspect]
     Dosage: TOTAL DAILY DOSE: 440 MG  UNIT DOSE: 220 MG
     Route: 048
     Dates: start: 20090410, end: 20090410
  3. PRIVINIL [Concomitant]
     Route: 065
  4. LEVOTHYROXINE SODIUM [Concomitant]
     Route: 065
  5. KEFLEX [Concomitant]
     Route: 065

REACTIONS (10)
  - BLOOD GLUCOSE INCREASED [None]
  - CARDIAC DISORDER [None]
  - CARDIAC FAILURE [None]
  - DYSPNOEA [None]
  - ERYTHEMA [None]
  - HEART RATE INCREASED [None]
  - HEART RATE IRREGULAR [None]
  - HYPERSENSITIVITY [None]
  - PRURITUS GENERALISED [None]
  - VISION BLURRED [None]
